FAERS Safety Report 5321772-8 (Version None)
Quarter: 2007Q2

REPORT INFORMATION
  Report Type: 
  Country: None (occurrence: None)
  Receive Date: 20070510
  Receipt Date: 20070430
  Transmission Date: 20071010
  Serious: Yes (Other)
  Sender: FDA-Public Use
  Company Number: US-PFIZER INC-2007034929

PATIENT
  Sex: Female
  Weight: 50.8 kg

DRUGS (3)
  1. PROCARDIA [Suspect]
     Indication: RAYNAUD'S PHENOMENON
  2. REVATIO [Suspect]
     Indication: RAYNAUD'S PHENOMENON
  3. PLAVIX [Concomitant]

REACTIONS (1)
  - HAEMOGLOBIN DECREASED [None]
